FAERS Safety Report 6198881-7 (Version None)
Quarter: 2009Q2

REPORT INFORMATION
  Report Type: 
  Country: None (occurrence: None)
  Receive Date: 20090520
  Receipt Date: 20090520
  Transmission Date: 20091009
  Serious: Yes (Hospitalization, Other)
  Sender: FDA-Public Use
  Company Number: None

PATIENT
  Age: 44 Year
  Sex: Female
  Weight: 46.7 kg

DRUGS (3)
  1. ISOVUE-300 [Suspect]
     Indication: ANGIOGRAM
     Dosage: IV
     Route: 042
     Dates: start: 20090514, end: 20090515
  2. ISOVUE-300 [Suspect]
     Indication: CHEST PAIN
     Dosage: IV
     Route: 042
     Dates: start: 20090514, end: 20090515
  3. ISOVUE-300 [Suspect]

REACTIONS (2)
  - DYSPNOEA [None]
  - PHARYNGEAL OEDEMA [None]
